FAERS Safety Report 16673289 (Version 2)
Quarter: 2022Q1

REPORT INFORMATION
  Report Type: Spontaneous
  Country: US (occurrence: US)
  Receive Date: 20190806
  Receipt Date: 20220125
  Transmission Date: 20220424
  Serious: No
  Sender: FDA-Public Use
  Company Number: US-PFIZER INC-2019332606

PATIENT
  Age: 72 Year
  Sex: Female

DRUGS (1)
  1. LYRICA [Suspect]
     Active Substance: PREGABALIN
     Indication: Fibromyalgia
     Dosage: 400 MG, DAILY (TAKES 400MG A DAY)

REACTIONS (4)
  - Memory impairment [Unknown]
  - Balance disorder [Unknown]
  - Diplopia [Unknown]
  - Feeling drunk [Unknown]
